FAERS Safety Report 9282878 (Version 1)
Quarter: 2013Q2

REPORT INFORMATION
  Report Type: Spontaneous
  Country: US (occurrence: US)
  Receive Date: 20130510
  Receipt Date: 20130510
  Transmission Date: 20140414
  Serious: Yes (Life-Threatening, Hospitalization)
  Sender: FDA-Public Use
  Company Number: US-BRISTOL-MYERS SQUIBB COMPANY-18850198

PATIENT
  Age: 72 Year
  Sex: Female

DRUGS (7)
  1. BYDUREON [Suspect]
     Indication: TYPE 2 DIABETES MELLITUS
     Dosage: NO OF INJ:2?SECOND INJ:22APR2013
     Dates: start: 20120415
  2. LANTUS [Concomitant]
     Dosage: 1DF = 20 UNITS
  3. ACTOPLUS MET [Concomitant]
     Dates: end: 20130415
  4. LEVOTHYROXINE [Concomitant]
  5. LISINOPRIL [Concomitant]
  6. SIMVASTATIN [Concomitant]
  7. JANUVIA [Concomitant]

REACTIONS (3)
  - Blood glucose increased [Recovering/Resolving]
  - Abdominal pain [Recovering/Resolving]
  - Dizziness [Recovering/Resolving]
